FAERS Safety Report 8195632 (Version 5)
Quarter: 2013Q3

REPORT INFORMATION
  Report Type: Spontaneous
  Country: US (occurrence: US)
  Receive Date: 20111024
  Receipt Date: 20130926
  Transmission Date: 20140515
  Serious: Yes (Hospitalization, Other)
  Sender: FDA-Public Use
  Company Number: US-JNJFOC-20111008358

PATIENT
  Sex: Female

DRUGS (15)
  1. LEVAQUIN [Suspect]
     Indication: DYSPNOEA
     Route: 042
  2. LEVAQUIN [Suspect]
     Indication: PYREXIA
     Route: 042
  3. LEVAQUIN [Suspect]
     Indication: FATIGUE
     Route: 042
  4. LEVAQUIN [Suspect]
     Indication: CHEST PAIN
     Route: 042
  5. ASPIRIN [Concomitant]
     Route: 065
  6. LOVASTATIN [Concomitant]
     Route: 065
  7. METFORMIN [Concomitant]
     Indication: DIABETES MELLITUS
     Route: 047
  8. BENICAR [Concomitant]
     Route: 065
  9. ACIPHEX [Concomitant]
     Route: 065
  10. ZOLOFT [Concomitant]
     Route: 065
  11. AMLODIPINE [Concomitant]
     Route: 065
  12. LEVAQUIN [Suspect]
     Indication: DYSPNOEA
     Route: 048
  13. LEVAQUIN [Suspect]
     Indication: PYREXIA
     Route: 048
  14. LEVAQUIN [Suspect]
     Indication: FATIGUE
     Route: 048
  15. LEVAQUIN [Suspect]
     Indication: CHEST PAIN
     Route: 048

REACTIONS (13)
  - Stevens-Johnson syndrome [Recovering/Resolving]
  - Cerebrovascular accident [Unknown]
  - Renal failure [Recovered/Resolved]
  - Hepatic cyst [Unknown]
  - Alopecia [Unknown]
  - Raynaud^s phenomenon [Unknown]
  - Amnesia [Unknown]
  - Depression [Recovering/Resolving]
  - Staphylococcal infection [Unknown]
  - Renal cyst [Unknown]
  - Clostridium difficile colitis [Unknown]
  - Anaemia [Unknown]
  - Tendonitis [Unknown]
